FAERS Safety Report 11387543 (Version 3)
Quarter: 2015Q4

REPORT INFORMATION
  Report Type: Report from Study
  Country: US (occurrence: US)
  Receive Date: 20150817
  Receipt Date: 20151215
  Transmission Date: 20160304
  Serious: Yes (Hospitalization, Other)
  Sender: FDA-Public Use
  Company Number: US-AMGEN-USASL2015082507

PATIENT
  Age: 58 Year
  Sex: Male

DRUGS (1)
  1. ENBREL [Suspect]
     Active Substance: ETANERCEPT
     Indication: RHEUMATOID ARTHRITIS
     Dosage: 50 MG, QWK
     Route: 065
     Dates: end: 201511

REACTIONS (5)
  - Fall [Unknown]
  - Femur fracture [Unknown]
  - Back disorder [Unknown]
  - Bone disorder [Unknown]
  - Back pain [Unknown]

NARRATIVE: CASE EVENT DATE: 20150604
